FAERS Safety Report 4395470-1 (Version None)
Quarter: 2004Q3

REPORT INFORMATION
  Report Type: 
  Country: None (occurrence: None)
  Receive Date: 20040712
  Receipt Date: 20040712
  Transmission Date: 20050211
  Serious: Yes (Other)
  Sender: FDA-Public Use
  Company Number: None

PATIENT
  Age: 63 Year
  Sex: Female
  Weight: 58.9676 kg

DRUGS (2)
  1. TAMOXIFEN 20 MG IVAX [Suspect]
     Indication: BREAST CANCER IN SITU
     Dosage: 1 TAB DAILY
     Dates: start: 20040210, end: 20040410
  2. FOSAMAX [Concomitant]

REACTIONS (4)
  - DEPRESSION [None]
  - FATIGUE [None]
  - HOT FLUSH [None]
  - PHARMACEUTICAL PRODUCT COMPLAINT [None]
